FAERS Safety Report 4652186-1 (Version None)
Quarter: 2005Q2

REPORT INFORMATION
  Report Type: 
  Country: None (occurrence: None)
  Receive Date: 20050504
  Receipt Date: 20050404
  Transmission Date: 20051028
  Serious: Yes (Life-Threatening, Hospitalization, Congenital Anomaly, Other)
  Sender: FDA-Public Use
  Company Number: FR-BRISTOL-MYERS SQUIBB COMPANY-12926440

PATIENT
  Sex: Female
  Weight: 3 kg

DRUGS (4)
  1. GLUCOPHAGE [Suspect]
     Route: 064
     Dates: start: 20040501, end: 20050213
  2. DIOSMIN [Suspect]
     Route: 064
  3. LESCOL [Suspect]
     Route: 064
  4. COTAREG [Suspect]
     Route: 064

REACTIONS (8)
  - BLOOD CALCIUM ABNORMAL [None]
  - BLOOD PHOSPHORUS ABNORMAL [None]
  - BONE DENSITY INCREASED [None]
  - CARDIO-RESPIRATORY DISTRESS [None]
  - PREGNANCY [None]
  - PULMONARY HYPERTENSION [None]
  - RENAL FAILURE [None]
  - VENTRICULAR HYPERTROPHY [None]
